FAERS Safety Report 4375999-2 (Version None)
Quarter: 2004Q2

REPORT INFORMATION
  Report Type: 
  Country: None (occurrence: None)
  Receive Date: 20040609
  Receipt Date: 20040609
  Transmission Date: 20050107
  Serious: Yes (Hospitalization)
  Sender: FDA-Public Use
  Company Number: None

PATIENT
  Sex: Male
  Weight: 59.8748 kg

DRUGS (4)
  1. TENOFOVIR 300 MG [Suspect]
     Indication: END STAGE AIDS
     Dosage: 300 MG QD ORAL
     Route: 048
     Dates: start: 20020509, end: 20040103
  2. KALETRA [Concomitant]
  3. DDI [Concomitant]
  4. STAVUDINE [Concomitant]

REACTIONS (1)
  - RENAL FAILURE ACUTE [None]
